FAERS Safety Report 10706965 (Version 1)
Quarter: 2015Q1

REPORT INFORMATION
  Report Type: Report from Study
  Country: US (occurrence: US)
  Receive Date: 20150113
  Receipt Date: 20150113
  Transmission Date: 20150721
  Serious: Yes (Other)
  Sender: FDA-Public Use
  Company Number: PHEH2015US000559

PATIENT
  Age: 38 Year
  Sex: Male
  Weight: 76.19 kg

DRUGS (1)
  1. GILENYA [Suspect]
     Active Substance: FINGOLIMOD HYDROCHLORIDE
     Indication: MULTIPLE SCLEROSIS
     Dosage: 0.5 MG, QD
     Route: 048
     Dates: start: 20140715

REACTIONS (10)
  - Sinusitis [Recovered/Resolved]
  - Sputum purulent [Recovered/Resolved]
  - Nasopharyngitis [Recovered/Resolved]
  - Chills [Recovered/Resolved]
  - Haemoptysis [Recovered/Resolved]
  - Musculoskeletal stiffness [Recovered/Resolved]
  - Bronchitis [Recovered/Resolved]
  - Tremor [Recovered/Resolved]
  - Toothache [Recovered/Resolved]
  - Pyrexia [Recovered/Resolved]

NARRATIVE: CASE EVENT DATE: 201409
